FAERS Safety Report 10176576 (Version 1)
Quarter: 2014Q2

REPORT INFORMATION
  Report Type: Spontaneous
  Country: US (occurrence: None)
  Receive Date: 20140515
  Receipt Date: 20140515
  Transmission Date: 20141212
  Serious: Yes (Life-Threatening, Other)
  Sender: FDA-Public Use
  Company Number: None

PATIENT
  Age: 15 Year
  Sex: Female
  Weight: 88.4 kg

DRUGS (1)
  1. FLOVENT [Suspect]
     Indication: ASTHMA
     Dosage: 2 PUFFS BID RESPIRATORY

REACTIONS (5)
  - Anaphylactic reaction [None]
  - Rash [None]
  - Urticaria [None]
  - Paraesthesia oral [None]
  - Lip swelling [None]
